FAERS Safety Report 5475821-7 (Version None)
Quarter: 2007Q4

REPORT INFORMATION
  Report Type: 
  Country: None (occurrence: None)
  Receive Date: 20071003
  Receipt Date: 20070919
  Transmission Date: 20080405
  Serious: Yes (Death)
  Sender: FDA-Public Use
  Company Number: B0484301A

PATIENT
  Sex: Female
  Weight: 81.8 kg

DRUGS (5)
  1. TOPOTECAN [Suspect]
     Dosage: 1.5MGM2 CYCLIC
     Route: 048
     Dates: start: 20011008
  2. PACLITAXEL [Suspect]
     Dosage: 110MGM2 CYCLIC
     Route: 042
  3. ETOPOSIDE [Suspect]
     Dosage: 160MGM2 CYCLIC
     Route: 048
  4. NEUPOGEN [Concomitant]
     Route: 058
  5. RADIATION [Concomitant]

REACTIONS (2)
  - ANAEMIA [None]
  - MYOCARDIAL ISCHAEMIA [None]
